FAERS Safety Report 14805127 (Version 1)
Quarter: 2018Q2

REPORT INFORMATION
  Report Type: Spontaneous
  Country: LB (occurrence: LB)
  Receive Date: 20180425
  Receipt Date: 20180425
  Transmission Date: 20180711
  Serious: Yes (Hospitalization, Other)
  Sender: FDA-Public Use
  Company Number: LB-ACCORD-065984

PATIENT
  Age: 56 Year
  Sex: Male

DRUGS (3)
  1. FOLINIC ACID [Concomitant]
     Active Substance: LEUCOVORIN
     Indication: DIFFUSE LARGE B-CELL LYMPHOMA
     Dosage: EVERY 3 WEEKS
  2. ARA-C [Concomitant]
     Active Substance: CYTARABINE
     Indication: DIFFUSE LARGE B-CELL LYMPHOMA
     Dosage: DOSE: 2 G/M2; HIGH DOSE; TWICE DAILY ON DAYS 2 AND 3, EVERY 3 WEEKS
  3. METHOTREXATE. [Suspect]
     Active Substance: METHOTREXATE
     Indication: DIFFUSE LARGE B-CELL LYMPHOMA
     Dosage: DOSE: 3 G/M2; HIGH DOSE; EVERY 3 WEEKS. ON DAY 1

REACTIONS (4)
  - Thrombocytopenia [Recovered/Resolved]
  - Hypersensitivity vasculitis [Recovered/Resolved]
  - Febrile neutropenia [Unknown]
  - Acute kidney injury [Unknown]
